FAERS Safety Report 7256884-5 (Version None)
Quarter: 2011Q1

REPORT INFORMATION
  Report Type: 
  Country: None (occurrence: None)
  Receive Date: 20110129
  Receipt Date: 20100616
  Transmission Date: 20110831
  Serious: No
  Sender: FDA-Public Use
  Company Number: US-ABBOTT-10P-163-0652602-00

PATIENT
  Sex: Female
  Weight: 70.37 kg

DRUGS (5)
  1. HUMIRA [Suspect]
     Dosage: EXPIRED RX IN APR 2010
     Route: 058
     Dates: start: 20100429
  2. METFORMIN [Concomitant]
     Indication: DIABETES MELLITUS
     Route: 048
  3. LISINOPRIL [Concomitant]
     Indication: HYPERTENSION
     Route: 048
  4. HUMIRA [Suspect]
     Indication: RHEUMATOID ARTHRITIS
     Route: 058
     Dates: start: 20090501, end: 20100401
  5. GLIPIZIDE [Concomitant]
     Indication: DIABETES MELLITUS
     Route: 048

REACTIONS (2)
  - FATIGUE [None]
  - ARTHRALGIA [None]
